FAERS Safety Report 9038639 (Version 4)
Quarter: 2013Q4

REPORT INFORMATION
  Report Type: Spontaneous
  Country: JP (occurrence: JP)
  Receive Date: 20130129
  Receipt Date: 20131226
  Transmission Date: 20140711
  Serious: Yes (Hospitalization, Other)
  Sender: FDA-Public Use
  Company Number: JP-GILEAD-2013-0068657

PATIENT
  Age: 32 Year
  Sex: Female

DRUGS (8)
  1. AMBRISENTAN [Suspect]
     Indication: PULMONARY HYPERTENSION
     Dosage: 2.5MG PER DAY
     Route: 048
     Dates: start: 20130107, end: 20130119
  2. ADCIRCA [Concomitant]
     Indication: PULMONARY HYPERTENSION
     Dosage: 40 MG, QD
     Route: 048
     Dates: start: 20121119
  3. ADCIRCA [Concomitant]
     Dosage: 40MG PER DAY
     Route: 048
     Dates: start: 20121129
  4. THYRADIN S [Concomitant]
     Indication: AUTOIMMUNE THYROIDITIS
     Dosage: 50MCG PER DAY
     Route: 048
     Dates: start: 20121031
  5. ALFAROL [Concomitant]
     Indication: OSTEOPOROSIS
     Dosage: .25MCG TWICE PER DAY
     Route: 048
     Dates: start: 20121127
  6. GASMOTIN [Concomitant]
     Indication: CONSTIPATION
     Dosage: 5MG THREE TIMES PER DAY
     Route: 048
     Dates: start: 20121220
  7. PREDONINE                          /00016201/ [Concomitant]
     Indication: SYSTEMIC LUPUS ERYTHEMATOSUS
     Dosage: 50MG PER DAY
     Route: 042
     Dates: start: 20121125
  8. OXYGEN [Concomitant]

REACTIONS (3)
  - Interstitial lung disease [Recovered/Resolved]
  - Oxygen saturation decreased [Recovering/Resolving]
  - Dyspnoea [Recovered/Resolved]
